FAERS Safety Report 10150166 (Version 2)
Quarter: 2014Q2

REPORT INFORMATION
  Report Type: Spontaneous
  Country: DE (occurrence: DE)
  Receive Date: 20140502
  Receipt Date: 20140618
  Transmission Date: 20141212
  Serious: Yes (Life-Threatening)
  Sender: FDA-Public Use
  Company Number: DE-GLAXOSMITHKLINE-D0083804A

PATIENT
  Age: 63 Year
  Sex: Female
  Weight: 67 kg

DRUGS (1)
  1. VOTRIENT [Suspect]
     Indication: LEIOMYOSARCOMA
     Dosage: 800MG PER DAY
     Route: 048
     Dates: start: 20131219, end: 20140312

REACTIONS (3)
  - Cardiac failure [Recovering/Resolving]
  - Cardiomyopathy [Unknown]
  - Dyspnoea [Unknown]
